FAERS Safety Report 16412431 (Version 1)
Quarter: 2019Q2

REPORT INFORMATION
  Report Type: Spontaneous
  Country: ES (occurrence: PT)
  Receive Date: 20190610
  Receipt Date: 20190610
  Transmission Date: 20190711
  Serious: Yes (Death, Hospitalization)
  Sender: FDA-Public Use
  Company Number: ES-CELLTRION INC.-2019PT019386

PATIENT

DRUGS (4)
  1. INDOMETHACIN [INDOMETACIN] [Concomitant]
     Active Substance: INDOMETHACIN
     Dosage: 75 MG, BID
  2. METHOTREXATE. [Concomitant]
     Active Substance: METHOTREXATE
     Dosage: 15 MG, WEEK, STARTED 6 YEARS AGO
  3. INFLIXIMAB (UNKNOWN) [Suspect]
     Active Substance: INFLIXIMAB
     Indication: ANKYLOSING SPONDYLITIS
     Dosage: 5 MG/KG EVERY 8 WEEKS FOR THE PAST 5 YEARS
     Route: 065
  4. PREDNISONE. [Concomitant]
     Active Substance: PREDNISONE
     Dosage: 10 MG, DAILY

REACTIONS (16)
  - Disease progression [Fatal]
  - Large intestine perforation [Unknown]
  - Diarrhoea [Unknown]
  - Asthenia [Unknown]
  - Diverticular perforation [Unknown]
  - Post procedural complication [Fatal]
  - Hepatic failure [Fatal]
  - Weight decreased [Unknown]
  - Hypotension [Unknown]
  - Hypoglycaemia [Unknown]
  - Hepatitis B reactivation [Unknown]
  - Pyrexia [Unknown]
  - Abdominal abscess [Unknown]
  - Mobility decreased [Unknown]
  - Lung adenocarcinoma [Unknown]
  - Balance disorder [Unknown]
